FAERS Safety Report 13098341 (Version 1)
Quarter: 2017Q1

REPORT INFORMATION
  Report Type: Spontaneous
  Country: AU (occurrence: AU)
  Receive Date: 20170109
  Receipt Date: 20170109
  Transmission Date: 20170428
  Serious: Yes (Other)
  Sender: FDA-Public Use
  Company Number: AU-MYLANLABS-2016M1059271

PATIENT

DRUGS (3)
  1. AMOXICILLIN. [Concomitant]
     Active Substance: AMOXICILLIN
     Indication: PNEUMONIA
     Route: 048
  2. DOXYCYCLINE. [Concomitant]
     Active Substance: DOXYCYCLINE
     Indication: PNEUMONIA
     Route: 048
  3. ERYTHROMYCIN. [Suspect]
     Active Substance: ERYTHROMYCIN
     Indication: PNEUMONIA
     Dosage: SHE RECEIVED THREE DOSES IN TOTAL, AT THE TIMES 10:00, 16:00 AND 22:00
     Route: 042

REACTIONS (2)
  - Atrioventricular block complete [Recovered/Resolved]
  - Cardiac arrest [Recovered/Resolved]
